FAERS Safety Report 4345013-3 (Version None)
Quarter: 2004Q2

REPORT INFORMATION
  Report Type: 
  Country: None (occurrence: None)
  Receive Date: 20040420
  Receipt Date: 20040407
  Transmission Date: 20050107
  Serious: Yes (Death)
  Sender: FDA-Public Use
  Company Number: 2003AP03833

PATIENT
  Age: 58 Year
  Sex: Male

DRUGS (7)
  1. IRESSA [Suspect]
     Indication: LUNG SQUAMOUS CELL CARCINOMA STAGE UNSPECIFIED
     Dosage: 250 MG DAILY PO
     Route: 048
     Dates: start: 20030805, end: 20030814
  2. IRESSA [Suspect]
     Indication: NON-SMALL CELL LUNG CANCER
     Dosage: 250 MG DAILY PO
     Route: 048
     Dates: start: 20030805, end: 20030814
  3. CARBOPLATIN [Concomitant]
  4. PACLITAXEL [Concomitant]
  5. MORPHINE HYDROCHLORIDE [Concomitant]
  6. PREDONINE [Concomitant]
  7. DIFLUCAN [Concomitant]

REACTIONS (3)
  - BLOOD BILIRUBIN INCREASED [None]
  - PERFORMANCE STATUS DECREASED [None]
  - PNEUMONIA [None]
